FAERS Safety Report 6547404-9 (Version None)
Quarter: 2010Q1

REPORT INFORMATION
  Report Type: 
  Country: None (occurrence: None)
  Receive Date: 20100122
  Receipt Date: 20100114
  Transmission Date: 20100710
  Serious: Yes (Other)
  Sender: FDA-Public Use
  Company Number: PHHY2010DE02470

PATIENT
  Sex: Male

DRUGS (2)
  1. RASILEZ [Suspect]
     Indication: HYPERTENSION
  2. SARTAN [Concomitant]
     Indication: HYPERTENSION

REACTIONS (2)
  - RENAL IMPAIRMENT [None]
  - RENIN INCREASED [None]
